FAERS Safety Report 19216550 (Version 1)
Quarter: 2021Q2

REPORT INFORMATION
  Report Type: Spontaneous
  Country: US (occurrence: US)
  Receive Date: 20210504
  Receipt Date: 20210504
  Transmission Date: 20210717
  Serious: Yes (Other)
  Sender: FDA-Public Use
  Company Number: None

PATIENT
  Age: 29 Year
  Sex: Female
  Weight: 60.75 kg

DRUGS (1)
  1. CARAFATE [Suspect]
     Active Substance: SUCRALFATE
     Indication: ULCER
     Dates: start: 20210419, end: 20210504

REACTIONS (9)
  - Condition aggravated [None]
  - Nausea [None]
  - Vomiting [None]
  - Tinnitus [None]
  - Confusional state [None]
  - Flatulence [None]
  - Depression [None]
  - Feeling abnormal [None]
  - Eructation [None]

NARRATIVE: CASE EVENT DATE: 20210503
